FAERS Safety Report 6489721-7 (Version None)
Quarter: 2009Q4

REPORT INFORMATION
  Report Type: 
  Country: None (occurrence: None)
  Receive Date: 20091207
  Receipt Date: 20091124
  Transmission Date: 20100525
  Serious: Yes (Death, Life-Threatening, Other)
  Sender: FDA-Public Use
  Company Number: MC200900422

PATIENT

DRUGS (4)
  1. ANGIOMAX [Suspect]
     Indication: PERCUTANEOUS CORONARY INTERVENTION
  2. CLOPIDOGREL [Suspect]
     Indication: PERCUTANEOUS CORONARY INTERVENTION
     Dosage: BEGAN WITH 300 MG, LOADING DOSE
  3. PRASUGREL (PRASUGREL) [Suspect]
     Indication: PERCUTANEOUS CORONARY INTERVENTION
     Dosage: BEGAN WITH 60 MG, LOADING DOSE
  4. ASPIRIN [Suspect]

REACTIONS (6)
  - CARDIAC DEATH [None]
  - CEREBROVASCULAR ACCIDENT [None]
  - HAEMORRHAGE [None]
  - HAEMORRHAGE INTRACRANIAL [None]
  - MYOCARDIAL INFARCTION [None]
  - THROMBOSIS IN DEVICE [None]
